FAERS Safety Report 25680945 (Version 2)
Quarter: 2025Q3

REPORT INFORMATION
  Report Type: Spontaneous
  Country: GB (occurrence: GB)
  Receive Date: 20250814
  Receipt Date: 20250827
  Transmission Date: 20251020
  Serious: Yes (Hospitalization)
  Sender: REGENERON
  Company Number: GB-SA-2025SA234575

PATIENT
  Age: 77 Year
  Sex: Female

DRUGS (1)
  1. PRALUENT [Suspect]
     Active Substance: ALIROCUMAB
     Indication: Type IIa hyperlipidaemia
     Dosage: 150 MG, QOW, SOLUTION FOR INJECTION
     Route: 058

REACTIONS (4)
  - Hypotension [Unknown]
  - Dizziness postural [Unknown]
  - Surgery [Recovering/Resolving]
  - Weight decreased [Unknown]
